FAERS Safety Report 5352675-0 (Version None)
Quarter: 2007Q2

REPORT INFORMATION
  Report Type: 
  Country: None (occurrence: None)
  Receive Date: 20070518
  Receipt Date: 20070323
  Transmission Date: 20071010
  Serious: No
  Sender: FDA-Public Use
  Company Number: TPA2007A00593

PATIENT
  Age: 51 Year
  Sex: Female
  Weight: 58.9676 kg

DRUGS (5)
  1. ROZEREM [Suspect]
     Indication: INSOMNIA
     Dosage: 8 MG, QHS, PER ORAL
     Route: 048
     Dates: start: 20061201
  2. AMITIZA (LUBIPROSTONE) [Concomitant]
  3. SYNTHROID [Concomitant]
  4. SEROQUEL [Concomitant]
  5. LAMICTAL [Concomitant]

REACTIONS (1)
  - INITIAL INSOMNIA [None]
